FAERS Safety Report 16340664 (Version 1)
Quarter: 2019Q2

REPORT INFORMATION
  Report Type: Other
  Country: IE (occurrence: IE)
  Receive Date: 20190522
  Receipt Date: 20190522
  Transmission Date: 20190711
  Serious: Yes (Other)
  Sender: FDA-Public Use
  Company Number: IE-ASTELLAS-2019US021315

PATIENT
  Sex: Female

DRUGS (5)
  1. BUTRANS [Concomitant]
     Active Substance: BUPRENORPHINE
     Indication: PAIN
     Dosage: 20 MCG/HR
     Route: 065
     Dates: start: 20180525
  2. PANTIUM                            /01263204/ [Concomitant]
     Indication: GASTRIC PH DECREASED
     Route: 065
     Dates: start: 20180714
  3. BETMIGA [Suspect]
     Active Substance: MIRABEGRON
     Indication: PRODUCT USED FOR UNKNOWN INDICATION
     Route: 048
     Dates: start: 20190307
  4. DELTACORTRIL [Concomitant]
     Active Substance: PREDNISOLONE
     Indication: RHEUMATOID ARTHRITIS
     Route: 065
     Dates: start: 20170314
  5. BARICITINIB [Concomitant]
     Active Substance: BARICITINIB
     Indication: RHEUMATOID ARTHRITIS
     Route: 065
     Dates: start: 20190204

REACTIONS (3)
  - Abdominal pain upper [Unknown]
  - Throat tightness [Unknown]
  - Palpitations [Unknown]

NARRATIVE: CASE EVENT DATE: 20190310
